FAERS Safety Report 16388385 (Version 1)
Quarter: 2019Q3

REPORT INFORMATION
  Report Type: Spontaneous
  Country: US (occurrence: US)
  Receive Date: 20190601
  Receipt Date: 20190601
  Transmission Date: 20191004
  Serious: Yes (Disabling, Other)
  Sender: FDA-Public Use
  Company Number: None

PATIENT
  Age: 34 Year
  Sex: Female
  Weight: 67.5 kg

DRUGS (13)
  1. GABAPENTIN. [Concomitant]
     Active Substance: GABAPENTIN
  2. METHOCARBAMOL. [Concomitant]
     Active Substance: METHOCARBAMOL
  3. EXEDERINE [Concomitant]
  4. FAMOTIDINE. [Concomitant]
     Active Substance: FAMOTIDINE
  5. ESTRACE [Concomitant]
     Active Substance: ESTRADIOL
  6. FORMALDEHYDE. [Concomitant]
     Active Substance: FORMALDEHYDE
  7. TUMS [Concomitant]
     Active Substance: CALCIUM CARBONATE
  8. CETIRIZINE [Concomitant]
     Active Substance: CETIRIZINE HYDROCHLORIDE
  9. HYDROCORTISONE CREAM [Concomitant]
     Active Substance: HYDROCORTISONE
  10. AJOVY [Suspect]
     Active Substance: FREMANEZUMAB-VFRM
     Indication: MIGRAINE
     Dosage: ?          OTHER STRENGTH:SOSY;QUANTITY:1 INJECTION(S);OTHER FREQUENCY:ONCE A MONTH;?
     Route: 058
     Dates: start: 20190406, end: 20190601
  11. IMETRIX [Concomitant]
  12. CARISOPRODOL. [Concomitant]
     Active Substance: CARISOPRODOL
  13. MERILAX [Concomitant]

REACTIONS (3)
  - Constipation [None]
  - Acne [None]
  - Dyspepsia [None]

NARRATIVE: CASE EVENT DATE: 20190510
